FAERS Safety Report 9472564 (Version 2)
Quarter: 2014Q1

REPORT INFORMATION
  Report Type: Spontaneous
  Country: US (occurrence: US)
  Receive Date: 20130823
  Receipt Date: 20140130
  Transmission Date: 20141002
  Serious: Yes (Hospitalization)
  Sender: FDA-Public Use
  Company Number: US-BAYER-2013-094761

PATIENT
  Age: 35 Year
  Sex: Female
  Weight: 56.69 kg

DRUGS (10)
  1. MIRENA [Suspect]
     Indication: CONTRACEPTION
     Dosage: 20 MCG/24HR, CONT
     Route: 015
     Dates: start: 20090601, end: 20111014
  2. SUMATRIPTAN [Concomitant]
     Indication: MIGRAINE
     Dosage: UNK
     Dates: start: 2002
  3. FLUOXETINE [Concomitant]
     Indication: ANXIETY
     Dosage: UNK
     Dates: start: 2005, end: 2013
  4. BACTRIM [Concomitant]
  5. MACROBID [Concomitant]
  6. CIPRO [Concomitant]
  7. FLEXERIL [Concomitant]
  8. IMITREX [Concomitant]
  9. MIDRIN [Concomitant]
  10. XANAX [Concomitant]

REACTIONS (8)
  - Uterine perforation [None]
  - Injury [None]
  - Pain [None]
  - Emotional distress [None]
  - Infertility [None]
  - Depression [None]
  - Anxiety [None]
  - Discomfort [None]
